FAERS Safety Report 21094177 (Version 1)
Quarter: 2022Q3

REPORT INFORMATION
  Report Type: Spontaneous
  Country: CN (occurrence: CN)
  Receive Date: 20220718
  Receipt Date: 20220718
  Transmission Date: 20221027
  Serious: Yes (Life-Threatening)
  Sender: FDA-Public Use
  Company Number: CN-009507513-2207CHN003527

PATIENT
  Age: 74 Year
  Sex: Female
  Weight: 55 kg

DRUGS (4)
  1. CILASTATIN SODIUM\IMIPENEM [Suspect]
     Active Substance: CILASTATIN SODIUM\IMIPENEM
     Indication: Febrile infection
     Dosage: 0.5 G, QID
     Route: 041
     Dates: start: 20220623, end: 20220623
  2. CILASTATIN SODIUM\IMIPENEM [Suspect]
     Active Substance: CILASTATIN SODIUM\IMIPENEM
     Indication: Anti-infective therapy
  3. CEFOPERAZONE SODIUM\SULBACTAM SODIUM [Concomitant]
     Active Substance: CEFOPERAZONE SODIUM\SULBACTAM SODIUM
     Indication: Anti-infective therapy
     Dosage: 2 GRAM, Q12H
     Route: 041
     Dates: start: 20120623, end: 20220623
  4. SODIUM CHLORIDE [Concomitant]
     Active Substance: SODIUM CHLORIDE
     Indication: Fluid replacement
     Dosage: UNK
     Dates: start: 20220623

REACTIONS (4)
  - Drug hypersensitivity [Recovering/Resolving]
  - Dysphoria [Unknown]
  - Anal incontinence [Unknown]
  - Urinary incontinence [Unknown]

NARRATIVE: CASE EVENT DATE: 20220623
